FAERS Safety Report 20233585 (Version 2)
Quarter: 2022Q1

REPORT INFORMATION
  Report Type: Report from Study
  Country: CA (occurrence: CA)
  Receive Date: 20211227
  Receipt Date: 20220202
  Transmission Date: 20220423
  Serious: Yes (Other)
  Sender: FDA-Public Use
  Company Number: CA-JNJFOC-20211236879

PATIENT
  Age: 57 Year
  Sex: Male
  Weight: 66.8 kg

DRUGS (7)
  1. AMIVANTAMAB [Suspect]
     Active Substance: AMIVANTAMAB
     Indication: Non-small cell lung cancer metastatic
     Route: 042
     Dates: start: 20211209, end: 20211209
  2. AMIVANTAMAB [Suspect]
     Active Substance: AMIVANTAMAB
     Route: 042
     Dates: start: 20211210, end: 20211210
  3. LEVOTHYROXINE [Concomitant]
     Active Substance: LEVOTHYROXINE
     Indication: Hypothyroidism
     Route: 048
  4. CALCIUM [Concomitant]
     Active Substance: CALCIUM
     Indication: Hypocalcaemia
     Route: 048
  5. CALCIUM [Concomitant]
     Active Substance: CALCIUM
     Indication: Osteoporosis
  6. ERGOCALCIFEROL [Concomitant]
     Active Substance: ERGOCALCIFEROL
     Indication: Hypocalcaemia
     Route: 048
  7. ERGOCALCIFEROL [Concomitant]
     Active Substance: ERGOCALCIFEROL
     Indication: Osteoporosis

REACTIONS (3)
  - Musculoskeletal pain [Recovering/Resolving]
  - Infusion related reaction [Recovered/Resolved]
  - Therapeutic product effect incomplete [Unknown]

NARRATIVE: CASE EVENT DATE: 20211209
